FAERS Safety Report 23708733 (Version 1)
Quarter: 2024Q2

REPORT INFORMATION
  Report Type: Report from Study
  Country: US (occurrence: US)
  Receive Date: 20240404
  Receipt Date: 20240404
  Transmission Date: 20240715
  Serious: No
  Sender: FDA-Public Use
  Company Number: US-TG THERAPEUTICS INC.-TGT003373

PATIENT
  Age: 28 Year
  Sex: Male

DRUGS (2)
  1. UBLITUXIMAB [Suspect]
     Active Substance: UBLITUXIMAB
     Indication: Multiple sclerosis
     Route: 042
  2. UBLITUXIMAB [Suspect]
     Active Substance: UBLITUXIMAB
     Dosage: UNK, 24-WEEK DOSING REGIMEN
     Route: 042
     Dates: start: 20230916, end: 20230916

REACTIONS (4)
  - Choking [Unknown]
  - Muscular weakness [Unknown]
  - Tremor [Unknown]
  - Condition aggravated [Unknown]
